FAERS Safety Report 18484978 (Version 1)
Quarter: 2020Q4

REPORT INFORMATION
  Report Type: Spontaneous
  Country: US (occurrence: US)
  Receive Date: 20201110
  Receipt Date: 20201110
  Transmission Date: 20210114
  Serious: No
  Sender: FDA-Public Use
  Company Number: US-OTSUKA-2020_013058

PATIENT
  Age: 14 Year
  Sex: Male

DRUGS (1)
  1. NUEDEXTA [Suspect]
     Active Substance: DEXTROMETHORPHAN HYDROBROMIDE\QUINIDINE SULFATE
     Indication: MIGRAINE
     Dosage: UNK
     Route: 065

REACTIONS (2)
  - Product administered to patient of inappropriate age [Unknown]
  - Product use in unapproved indication [Unknown]
